FAERS Safety Report 9161240 (Version 2)
Quarter: 2013Q1

REPORT INFORMATION
  Report Type: Report from Study
  Country: AU (occurrence: AU)
  Receive Date: 20130313
  Receipt Date: 20130321
  Transmission Date: 20140127
  Serious: Yes (Hospitalization)
  Sender: FDA-Public Use
  Company Number: AU-GLAXOSMITHKLINE-B0873989A

PATIENT
  Age: 57 Year
  Sex: Male
  Weight: 70 kg

DRUGS (19)
  1. PAZOPANIB [Suspect]
     Indication: RENAL CELL CARCINOMA
     Route: 048
     Dates: end: 20130110
  2. SITAGLIPTIN [Concomitant]
     Indication: DIABETES MELLITUS
     Dosage: 100UNIT FOUR TIMES PER DAY
     Route: 048
     Dates: start: 20120401
  3. METFORMIN [Concomitant]
     Indication: DIABETES MELLITUS
     Dosage: 1500UNIT TWICE PER DAY
     Route: 048
     Dates: start: 20110101
  4. ASPIRIN [Concomitant]
     Indication: ANTIPLATELET THERAPY
     Dosage: 100UNIT FOUR TIMES PER DAY
     Route: 048
     Dates: start: 20080101
  5. IRBESARTAN [Concomitant]
     Indication: ANTIPLATELET THERAPY
     Dosage: 200MG FOUR TIMES PER DAY
     Dates: start: 20020101
  6. ATORVASTATIN [Concomitant]
     Indication: HYPERTENSION
     Dosage: 10MG FOUR TIMES PER DAY
     Route: 048
     Dates: start: 20080101
  7. SERETIDE [Concomitant]
     Indication: ASTHMA
     Route: 055
     Dates: start: 20070101
  8. BRICANYL TURBOHALER [Concomitant]
     Indication: ASTHMA
     Dates: start: 20070101
  9. MOXONIDINE [Concomitant]
     Indication: DIZZINESS
     Dosage: 200MG FOUR TIMES PER DAY
     Route: 048
     Dates: start: 20120401
  10. BETAHISTINE [Concomitant]
     Indication: DIZZINESS
     Dosage: 16MG AS REQUIRED
     Route: 048
     Dates: start: 20060101
  11. LERCANIDIPINE [Concomitant]
     Indication: HYPERTENSION
     Dosage: 20MG FOUR TIMES PER DAY
     Route: 048
     Dates: start: 20060101
  12. VITAMIN B SUPPLEMENT [Concomitant]
     Route: 048
     Dates: start: 20110101
  13. MAGNESIUM ASPARTATE [Concomitant]
     Indication: MUSCLE SPASMS
     Route: 048
     Dates: start: 20121106
  14. PANADOL OSTEO [Concomitant]
     Indication: PAIN
     Dosage: 665MG AS REQUIRED
     Route: 048
     Dates: start: 20121106
  15. OMEPRAZOLE [Concomitant]
     Indication: GASTROOESOPHAGEAL REFLUX DISEASE
     Route: 048
     Dates: start: 20121112
  16. FENTANYL PATCH [Concomitant]
     Indication: CHEST PAIN
     Route: 062
     Dates: start: 20121109
  17. LORAZEPAM [Concomitant]
     Indication: RELAXATION THERAPY
     Dates: start: 20121109
  18. PHENERGAN [Concomitant]
     Indication: NAUSEA
     Dosage: 10MG AS REQUIRED
     Route: 048
     Dates: start: 20121211
  19. ONDANSETRON [Concomitant]
     Indication: NAUSEA
     Dosage: 8UNIT AS REQUIRED
     Route: 048
     Dates: start: 20121211

REACTIONS (1)
  - Spinal cord compression [Not Recovered/Not Resolved]
